FAERS Safety Report 22625113 (Version 2)
Quarter: 2023Q2

REPORT INFORMATION
  Report Type: Spontaneous
  Country: US (occurrence: US)
  Receive Date: 20230621
  Receipt Date: 20230626
  Transmission Date: 20230722
  Serious: No
  Sender: FDA-Public Use
  Company Number: US-ORGANON-O2306USA002334

PATIENT
  Age: 20 Year
  Sex: Female
  Weight: 78.095 kg

DRUGS (1)
  1. NEXPLANON [Suspect]
     Active Substance: ETONOGESTREL
     Indication: Contraception
     Dosage: 1 IMPLANT IN LEFT ARM FOR 3 YEARS
     Route: 059
     Dates: start: 20221115

REACTIONS (5)
  - Pregnancy test false positive [Unknown]
  - Intermenstrual bleeding [Recovered/Resolved]
  - Menstruation irregular [Recovered/Resolved]
  - Nausea [Unknown]
  - Amenorrhoea [Not Recovered/Not Resolved]

NARRATIVE: CASE EVENT DATE: 20221101
